FAERS Safety Report 14972662 (Version 2)
Quarter: 2018Q2

REPORT INFORMATION
  Report Type: Spontaneous
  Country: US (occurrence: US)
  Receive Date: 20180605
  Receipt Date: 20180606
  Transmission Date: 20180711
  Serious: No
  Sender: FDA-Public Use
  Company Number: US-PFIZER INC-2018224883

PATIENT
  Age: 61 Year
  Sex: Female
  Weight: 102 kg

DRUGS (5)
  1. CARVEDILOL. [Concomitant]
     Active Substance: CARVEDILOL
     Indication: HEART RATE INCREASED
     Dosage: 6.25 MG, 2X/DAY
     Route: 048
  2. LASIX [Concomitant]
     Active Substance: FUROSEMIDE
     Indication: PLEURAL EFFUSION
  3. IBRANCE [Suspect]
     Active Substance: PALBOCICLIB
     Indication: BREAST CANCER RECURRENT
     Dosage: 75 MG, CYCLIC (ONCE A DAY, 21 DAYS ON AND THEN 7 DAYS OFF)
     Route: 048
     Dates: start: 201609
  4. LASIX [Concomitant]
     Active Substance: FUROSEMIDE
     Indication: PULMONARY OEDEMA
     Dosage: 20 MG, 1X/DAY
     Route: 048
  5. SPIRONOLACTONE. [Concomitant]
     Active Substance: SPIRONOLACTONE
     Indication: HEART RATE INCREASED
     Dosage: UNK, 1X/DAY
     Route: 048

REACTIONS (1)
  - White blood cell count abnormal [Unknown]
